FAERS Safety Report 5639717-X (Version None)
Quarter: 2008Q1

REPORT INFORMATION
  Report Type: 
  Country: None (occurrence: None)
  Receive Date: 20080131
  Receipt Date: 20071203
  Transmission Date: 20080703
  Serious: Yes (Hospitalization)
  Sender: FDA-Public Use
  Company Number: 163-21880-07110303

PATIENT
  Age: 73 Year
  Sex: Female
  Weight: 47.1741 kg

DRUGS (9)
  1. REVLIMID [Suspect]
     Indication: MULTIPLE MYELOMA
     Dosage: 10 MG, QD X 21 DAYS, ORAL; 5 MG, DAILY X 21 DAYS, ORAL
     Route: 048
     Dates: start: 20060117, end: 20071104
  2. REVLIMID [Suspect]
     Indication: MULTIPLE MYELOMA
     Dosage: 10 MG, QD X 21 DAYS, ORAL; 5 MG, DAILY X 21 DAYS, ORAL
     Route: 048
     Dates: start: 20071107
  3. DEXAMETHASONE [Suspect]
     Indication: MULTIPLE MYELOMA
     Dosage: O.6667 MG, 5 IN 1 M, ORAL; X 5 MONTHLY, ORAL
     Route: 048
     Dates: start: 20060117
  4. ATIVAN [Concomitant]
  5. ASPIRIN [Concomitant]
  6. BACTRIM DS [Concomitant]
  7. MYCELEX [Concomitant]
  8. CALTRATE 600 + D (CALCITE D) [Concomitant]
  9. PRILOSEC [Concomitant]

REACTIONS (1)
  - GASTROENTERITIS [None]
